FAERS Safety Report 16298779 (Version 2)
Quarter: 2019Q3

REPORT INFORMATION
  Report Type: Spontaneous
  Country: US (occurrence: US)
  Receive Date: 20190510
  Receipt Date: 20190913
  Transmission Date: 20191004
  Serious: Yes (Death, Life-Threatening, Other)
  Sender: FDA-Public Use
  Company Number: US-FRESENIUS KABI-FK201905246

PATIENT

DRUGS (1)
  1. OMEGAVEN [Suspect]
     Active Substance: FISH OIL
     Indication: PRODUCT USED FOR UNKNOWN INDICATION
     Dosage: UNKNOWN
     Route: 065

REACTIONS (7)
  - Cardio-respiratory arrest [Unknown]
  - Bradycardia [Unknown]
  - Unevaluable event [Unknown]
  - Intentional product use issue [Unknown]
  - Apnoea [Unknown]
  - Death [Fatal]
  - Malaise [Unknown]
